FAERS Safety Report 17517391 (Version 1)
Quarter: 2020Q1

REPORT INFORMATION
  Report Type: Spontaneous
  Country: CN (occurrence: CN)
  Receive Date: 20200309
  Receipt Date: 20200309
  Transmission Date: 20200409
  Serious: Yes (Hospitalization)
  Sender: FDA-Public Use
  Company Number: CN-BAYER-2020-035711

PATIENT
  Age: 69 Year
  Sex: Female

DRUGS (3)
  1. AVELOX [Suspect]
     Active Substance: MOXIFLOXACIN HYDROCHLORIDE
     Indication: CORONA VIRUS INFECTION
  2. AVELOX [Suspect]
     Active Substance: MOXIFLOXACIN HYDROCHLORIDE
     Indication: PNEUMONIA
     Dosage: 0.4 G, QD
     Route: 048
     Dates: start: 20200124, end: 20200128
  3. ARBIDOL [Concomitant]
     Indication: ANTIVIRAL TREATMENT
     Dosage: 0.2 G, TID
     Route: 048
     Dates: start: 20200124, end: 20200128

REACTIONS (7)
  - Cough [None]
  - Drug ineffective [None]
  - Decreased appetite [None]
  - Pneumonia [None]
  - Pyrexia [None]
  - Dyspnoea [None]
  - Asthenia [None]

NARRATIVE: CASE EVENT DATE: 202001
